FAERS Safety Report 5050799-9 (Version None)
Quarter: 2006Q3

REPORT INFORMATION
  Report Type: 
  Country: None (occurrence: None)
  Receive Date: 20060710
  Receipt Date: 20060628
  Transmission Date: 20061208
  Serious: Yes (Death)
  Sender: FDA-Public Use
  Company Number: GXKR2006JP03595

PATIENT
  Age: 67 Year
  Sex: Female

DRUGS (4)
  1. RIFAMPICIN [Suspect]
     Indication: TUBERCULOSIS
  2. ISONIAZID [Suspect]
     Indication: TUBERCULOSIS
  3. ETHAMBUTOL (NGX) (ETHAMBUTOL) [Suspect]
     Indication: TUBERCULOSIS
  4. PYRAZINAMIDE [Suspect]
     Indication: TUBERCULOSIS

REACTIONS (1)
  - LIVER DISORDER [None]
